FAERS Safety Report 6468245-7 (Version None)
Quarter: 2009Q4

REPORT INFORMATION
  Report Type: 
  Country: None (occurrence: None)
  Receive Date: 20091127
  Receipt Date: 20091112
  Transmission Date: 20100525
  Serious: Yes (Death)
  Sender: FDA-Public Use
  Company Number: 8054905

PATIENT
  Age: 79 Year

DRUGS (1)
  1. PREDNISOLONE [Suspect]

REACTIONS (3)
  - ANGIOCENTRIC LYMPHOMA [None]
  - LUNG ABSCESS [None]
  - PNEUMONIA [None]
